FAERS Safety Report 9802920 (Version 2)
Quarter: 2014Q1

REPORT INFORMATION
  Report Type: Spontaneous
  Country: SE (occurrence: None)
  Receive Date: 20140102
  Receipt Date: 20140306
  Transmission Date: 20141002
  Serious: Yes (Hospitalization)
  Sender: FDA-Public Use
  Company Number: AUR-APL-2013-10881

PATIENT
  Age: 27 Year
  Sex: Female

DRUGS (13)
  1. LAMOTRIGINE [Suspect]
     Indication: PRODUCT USED FOR UNKNOWN INDICATION
     Dosage: SINGLE
  2. OMEPRAZOLE [Suspect]
     Indication: PRODUCT USED FOR UNKNOWN INDICATION
     Dosage: SINGLE
  3. TEMESTA [Suspect]
     Indication: PRODUCT USED FOR UNKNOWN INDICATION
     Dosage: SINGLE
     Route: 048
  4. ZOPICLONE [Suspect]
     Indication: PRODUCT USED FOR UNKNOWN INDICATION
     Dosage: SINGLE
     Route: 048
  5. MOVICOL (POLYETHYL.GLYC. W/POTAS. CHLOR./SOD. BICARB.) [Concomitant]
  6. NEXPLANON (ETONOGESTEREL) [Concomitant]
  7. CONCERTA (METHYLPHENIDATE HYDROCHLORIDE) [Concomitant]
  8. PULMICORT TURBUHALER (BUDESONIDE) [Concomitant]
  9. SINGULAIR (MONTELUKAST SODIUM) TABLET [Concomitant]
  10. PAPAVERIN RECIP (PAPAVERINE HYDROCHLORIDE) [Concomitant]
  11. VENTOLINE DISKUS (SALBUTAMOL) [Concomitant]
  12. CETIRIZINE (CETIRIZINE) [Concomitant]
  13. TEMESTA (LORAZEPAM) [Concomitant]

REACTIONS (6)
  - Toxicity to various agents [None]
  - Dizziness [None]
  - Feeling abnormal [None]
  - Abdominal pain upper [None]
  - Chest pain [None]
  - Refusal of treatment by patient [None]
